FAERS Safety Report 14085077 (Version 1)
Quarter: 2017Q4

REPORT INFORMATION
  Report Type: Report from Study
  Country: ES (occurrence: ES)
  Receive Date: 20171013
  Receipt Date: 20171013
  Transmission Date: 20180321
  Serious: Yes (Other)
  Sender: FDA-Public Use
  Company Number: ES-BRISTOL-MYERS SQUIBB COMPANY-BMS-2017-090153

PATIENT
  Age: 55 Year

DRUGS (1)
  1. NIVOLUMAB [Suspect]
     Active Substance: NIVOLUMAB
     Indication: TONGUE NEOPLASM MALIGNANT STAGE UNSPECIFIED
     Dosage: UNK
     Route: 065
     Dates: start: 201502

REACTIONS (4)
  - Phrenic nerve paralysis [Unknown]
  - Respiratory tract infection [Unknown]
  - Dyspnoea [Unknown]
  - Atelectasis [Unknown]

NARRATIVE: CASE EVENT DATE: 2015
